FAERS Safety Report 12409489 (Version 1)
Quarter: 2016Q2

REPORT INFORMATION
  Report Type: Report from Study
  Country: CA (occurrence: CA)
  Receive Date: 20160526
  Receipt Date: 20160526
  Transmission Date: 20160815
  Serious: Yes (Hospitalization)
  Sender: FDA-Public Use
  Company Number: CA-TAKEDA-2016TUS008436

PATIENT
  Age: 32 Year
  Sex: Male

DRUGS (4)
  1. VEDOLIZUMAB [Suspect]
     Active Substance: VEDOLIZUMAB
     Indication: COLITIS ULCERATIVE
     Dosage: 300 MG, UNK
     Route: 042
     Dates: start: 20160420
  2. REMICADE [Concomitant]
     Active Substance: INFLIXIMAB
  3. PREDNISONE. [Concomitant]
     Active Substance: PREDNISONE
     Dosage: 40 MG, UNK
  4. URSODIOL. [Concomitant]
     Active Substance: URSODIOL
     Dosage: UNK, BID

REACTIONS (2)
  - Clostridium difficile infection [Unknown]
  - Gastrointestinal inflammation [Unknown]
